FAERS Safety Report 5081299-8 (Version None)
Quarter: 2006Q3

REPORT INFORMATION
  Report Type: 
  Country: None (occurrence: None)
  Receive Date: 20060816
  Receipt Date: 20060808
  Transmission Date: 20061208
  Serious: Yes (Other)
  Sender: FDA-Public Use
  Company Number: US-JNJFOC-20060802968

PATIENT
  Age: 81 Year
  Sex: Female

DRUGS (1)
  1. ULTRAM ER [Suspect]
     Indication: PAIN

REACTIONS (1)
  - CARDIAC FAILURE CONGESTIVE [None]
